FAERS Safety Report 15227782 (Version 1)
Quarter: 2018Q3

REPORT INFORMATION
  Report Type: Report from Study
  Country: US (occurrence: US)
  Receive Date: 20180801
  Receipt Date: 20180801
  Transmission Date: 20181010
  Serious: Yes (Hospitalization, Other)
  Sender: FDA-Public Use
  Company Number: US-SAKK-2018SA193403AA

PATIENT
  Age: 46 Year
  Sex: Female

DRUGS (2)
  1. ALEMTUZUMAB [Suspect]
     Active Substance: ALEMTUZUMAB
     Dosage: UNK
     Route: 041
     Dates: start: 20161205, end: 20161207
  2. ALEMTUZUMAB [Suspect]
     Active Substance: ALEMTUZUMAB
     Dosage: 12 MG, QD
     Route: 041
     Dates: start: 20151207, end: 20151211

REACTIONS (3)
  - Urinary retention [Not Recovered/Not Resolved]
  - Mental disorder [Not Recovered/Not Resolved]
  - Goodpasture^s syndrome [Not Recovered/Not Resolved]

NARRATIVE: CASE EVENT DATE: 20180524
